FAERS Safety Report 7624188-4 (Version None)
Quarter: 2011Q3

REPORT INFORMATION
  Report Type: 
  Country: None (occurrence: None)
  Receive Date: 20110720
  Receipt Date: 20110720
  Transmission Date: 20111222
  Serious: Yes (Hospitalization)
  Sender: FDA-Public Use
  Company Number: None

PATIENT
  Age: 28 Year
  Sex: Female
  Weight: 74.842 kg

DRUGS (1)
  1. ZOFRAN [Suspect]
     Indication: NAUSEA
     Dosage: 4MG
     Route: 048
     Dates: start: 20110713, end: 20110716

REACTIONS (5)
  - EXTRAPYRAMIDAL DISORDER [None]
  - RESTLESSNESS [None]
  - GAIT DISTURBANCE [None]
  - PALPITATIONS [None]
  - TREMOR [None]
